FAERS Safety Report 9260691 (Version 1)
Quarter: 2013Q1

REPORT INFORMATION
  Report Type: Spontaneous
  Country: US (occurrence: None)
  Receive Date: 20121212
  Receipt Date: 20121212
  Transmission Date: 20140127
  Serious: No
  Sender: FDA-Public Use
  Company Number: 1210USA003982

PATIENT
  Age: 45 Year
  Sex: Female

DRUGS (3)
  1. PEGINTRON [Suspect]
     Indication: HEPATITIS C
     Dates: start: 20120926
  2. RIBAVIRIN [Suspect]
     Indication: HEPATITIS C
     Dates: start: 20120926
  3. VICTRELIS [Suspect]
     Indication: HEPATITIS C
     Dates: start: 20121024

REACTIONS (18)
  - Headache [None]
  - Pruritus [None]
  - Pyrexia [None]
  - Dry skin [None]
  - Acne [None]
  - Injection site pruritus [None]
  - Insomnia [None]
  - Myalgia [None]
  - Injection [None]
  - Injection site bruising [None]
  - Feeling abnormal [None]
  - Dry mouth [None]
  - Skin odour abnormal [None]
  - Haemoglobin decreased [None]
  - Injection site rash [None]
  - Poor quality sleep [None]
  - Contusion [None]
  - Haematoma [None]
